FAERS Safety Report 9741488 (Version 1)
Quarter: 2013Q4

REPORT INFORMATION
  Report Type: Spontaneous
  Country: US (occurrence: US)
  Receive Date: 20131209
  Receipt Date: 20131209
  Transmission Date: 20140711
  Serious: No
  Sender: FDA-Public Use
  Company Number: US-TEVA-445122USA

PATIENT
  Age: 18 Year
  Sex: Female
  Weight: 62.2 kg

DRUGS (2)
  1. PARAGARD 380A [Suspect]
     Indication: CONTRACEPTION
     Dates: start: 20130904, end: 20131105
  2. PROPRANOLOL [Concomitant]
     Indication: NERVOUS SYSTEM DISORDER

REACTIONS (2)
  - Device expulsion [Recovered/Resolved]
  - Dysmenorrhoea [Unknown]
